FAERS Safety Report 19947524 (Version 1)
Quarter: 2021Q4

REPORT INFORMATION
  Report Type: Spontaneous
  Country: IT (occurrence: IT)
  Receive Date: 20211013
  Receipt Date: 20211013
  Transmission Date: 20220303
  Serious: Yes (Other)
  Sender: FDA-Public Use
  Company Number: IT-SUN PHARMACEUTICAL INDUSTRIES LTD-2021RR-313970

PATIENT
  Age: 57 Year
  Sex: Female

DRUGS (12)
  1. LENALIDOMIDE [Suspect]
     Active Substance: LENALIDOMIDE
     Indication: Plasma cell myeloma
     Dosage: 25 MG (DAYS 1-21)
     Route: 065
  2. MITOXANTRONE [Suspect]
     Active Substance: MITOXANTRONE HYDROCHLORIDE
     Indication: Plasma cell myeloma
     Dosage: 10 MILLIGRAM/SQ. METER, DAY 2-5
     Route: 065
  3. DEXAMETHASONE [Suspect]
     Active Substance: DEXAMETHASONE
     Indication: Plasma cell myeloma
     Dosage: 20 MG (BOTH AT DAYS
     Route: 065
  4. DEXAMETHASONE [Suspect]
     Active Substance: DEXAMETHASONE
     Dosage: 5 MILLIGRAM/SQ. METER, BID, 1-5, 15-19
     Route: 065
  5. PREDNISONE [Suspect]
     Active Substance: PREDNISONE
     Indication: Plasma cell myeloma
     Dosage: 20 MILLIGRAM/SQ. METER, DAYS -5 TO 1
     Route: 048
  6. VINCRISTINE [Suspect]
     Active Substance: VINCRISTINE
     Indication: Plasma cell myeloma
     Dosage: 1.4 MILLIGRAM/SQ. METER, DAYS 1, 8, 15, 22
     Route: 042
  7. CARFILZOMIB [Suspect]
     Active Substance: CARFILZOMIB
     Indication: Plasma cell myeloma
     Dosage: FOUR 28-DAY CYCLES 36 MG/M2
     Route: 065
  8. CYCLOPHOSPHAMIDE [Suspect]
     Active Substance: CYCLOPHOSPHAMIDE
     Indication: Plasma cell myeloma
     Dosage: 200 MILLIGRAM/SQ. METER, DAY -3 TO 1
     Route: 042
  9. IDARUBICIN [Suspect]
     Active Substance: IDARUBICIN
     Indication: Plasma cell myeloma
     Dosage: 9 MILLIGRAM/SQ. METER, DAYS 1-2
     Route: 042
  10. PEG/L-ASPARAGINASE [Suspect]
     Active Substance: PEGASPARGASE
     Indication: Plasma cell myeloma
     Dosage: 1000 IU/ SQUARE METER, DAY 10
     Route: 042
  11. GRANULOCYTE COLONY-STIMULATING FACTOR NOS [Suspect]
     Active Substance: GRANULOCYTE COLONY-STIMULATING FACTOR NOS
     Indication: Plasma cell myeloma
     Dosage: 5 MCG/KG
     Route: 058
  12. CYTARABINE [Suspect]
     Active Substance: CYTARABINE
     Indication: Plasma cell myeloma
     Dosage: 3000 MILLIGRAM/SQ. METER, BID
     Route: 065

REACTIONS (2)
  - Leukaemia [Unknown]
  - Therapeutic product effect incomplete [Unknown]
